FAERS Safety Report 8568172-5 (Version None)
Quarter: 2012Q3

REPORT INFORMATION
  Report Type: 
  Country: None (occurrence: None)
  Receive Date: 20120803
  Receipt Date: 20090310
  Transmission Date: 20120928
  Serious: Yes (Other)
  Sender: FDA-Public Use
  Company Number: AU-009507513-2008-185491-NL

PATIENT

DRUGS (2)
  1. ALCOHOL [Suspect]
  2. MIRTAZAPINE [Suspect]
     Indication: DEPRESSION
     Dosage: CONTINUING: NO
     Dates: start: 20080915, end: 20081015

REACTIONS (3)
  - SUICIDAL IDEATION [None]
  - AGGRESSION [None]
  - NIGHTMARE [None]
